FAERS Safety Report 26083385 (Version 1)
Quarter: 2025Q4

REPORT INFORMATION
  Report Type: Spontaneous
  Country: CA (occurrence: US)
  Receive Date: 20251124
  Receipt Date: 20251124
  Transmission Date: 20260117
  Serious: Yes (Other)
  Sender: PFIZER
  Company Number: CA-PFIZER INC-202500226105

PATIENT
  Age: 60 Year
  Sex: Female

DRUGS (2)
  1. DOBUTAMINE HYDROCHLORIDE [Suspect]
     Active Substance: DOBUTAMINE HYDROCHLORIDE
     Indication: Stress echocardiogram
     Dosage: UNK
     Dates: start: 20211108, end: 20211108
  2. DEFINITY [Concomitant]
     Active Substance: PERFLUTREN
     Dates: start: 20211108, end: 20211108

REACTIONS (5)
  - Electrocardiogram ST segment depression [Unknown]
  - Cardiac disorder [Recovered/Resolved]
  - Chest pain [Unknown]
  - Back pain [Unknown]
  - Vomiting [Unknown]

NARRATIVE: CASE EVENT DATE: 20211108
